FAERS Safety Report 5826422-X (Version None)
Quarter: 2008Q3

REPORT INFORMATION
  Report Type: 
  Country: None (occurrence: None)
  Receive Date: 20080729
  Receipt Date: 20080721
  Transmission Date: 20090109
  Serious: Yes (Hospitalization)
  Sender: FDA-Public Use
  Company Number: FR-BOEHRINGER INGELHEIM GMBH, GERMANY-2008-FF-00552FF

PATIENT
  Sex: Female

DRUGS (3)
  1. ATROVENT [Suspect]
     Indication: ASTHMATIC CRISIS
     Route: 045
  2. SOLU-MEDROL [Suspect]
     Route: 042
  3. BRICANYL [Suspect]
     Indication: ASTHMATIC CRISIS
     Route: 045

REACTIONS (1)
  - SKIN PLAQUE [None]
